FAERS Safety Report 13769526 (Version 1)
Quarter: 2017Q3

REPORT INFORMATION
  Report Type: Spontaneous
  Country: AU (occurrence: AU)
  Receive Date: 20170719
  Receipt Date: 20170719
  Transmission Date: 20171127
  Serious: Yes (Other)
  Sender: FDA-Public Use
  Company Number: AU-IGSA-SR10005069

PATIENT
  Age: 39 Year
  Sex: Male

DRUGS (6)
  1. FLEBOGAMMA DIF [Suspect]
     Active Substance: HUMAN IMMUNOGLOBULIN G
     Indication: ENCEPHALITIS AUTOIMMUNE
     Dosage: 15 G, Q.M.T.
     Route: 042
     Dates: start: 20170605, end: 20170606
  2. RIVAROXABAN [Concomitant]
     Active Substance: RIVAROXABAN
  3. FLEBOGAMMA DIF [Suspect]
     Active Substance: HUMAN IMMUNOGLOBULIN G
     Dosage: UNK
     Route: 042
     Dates: start: 20170605, end: 20170606
  4. METOPROLOL. [Concomitant]
     Active Substance: METOPROLOL
  5. BACLOFEN. [Concomitant]
     Active Substance: BACLOFEN
  6. OLANZAPINE. [Concomitant]
     Active Substance: OLANZAPINE

REACTIONS (2)
  - Blood pressure decreased [Recovered/Resolved]
  - Coma scale abnormal [Recovered/Resolved]

NARRATIVE: CASE EVENT DATE: 20170606
